FAERS Safety Report 4452685-1 (Version None)
Quarter: 2004Q3

REPORT INFORMATION
  Report Type: 
  Country: None (occurrence: None)
  Receive Date: 20040813
  Receipt Date: 20040621
  Transmission Date: 20050211
  Serious: No
  Sender: FDA-Public Use
  Company Number: S04-USA-03842-01

PATIENT
  Age: 87 Year
  Sex: Female

DRUGS (7)
  1. NAMENDA [Suspect]
     Indication: DEMENTIA
     Dosage: 10 MG QAM PO
     Route: 048
     Dates: start: 20040501, end: 20040501
  2. NAMENDA [Suspect]
     Indication: DEMENTIA
     Dosage: 5 MG QHS PO
     Route: 048
     Dates: start: 20040501, end: 20040501
  3. NAMENDA [Suspect]
     Indication: DEMENTIA
     Dosage: 10 MG BID PO
     Route: 048
     Dates: start: 20040501
  4. NAMENDA [Suspect]
     Indication: DEMENTIA
     Dosage: 5 MG QD PO
     Route: 048
     Dates: start: 20040501, end: 20040501
  5. NAMENDA [Suspect]
     Indication: DEMENTIA
     Dosage: 5 MG BID PO
     Route: 048
     Dates: start: 20040501, end: 20040501
  6. CONSTIPATION MEDICATION (NOS) [Concomitant]
  7. ANXIETY MEDICATION (NOS) [Concomitant]

REACTIONS (3)
  - ANOREXIA [None]
  - HYPERSOMNIA [None]
  - LETHARGY [None]
